FAERS Safety Report 14019030 (Version 2)
Quarter: 2018Q1

REPORT INFORMATION
  Report Type: Report from Study
  Country: US (occurrence: US)
  Receive Date: 20170928
  Receipt Date: 20180319
  Transmission Date: 20180508
  Serious: No
  Sender: FDA-Public Use
  Company Number: PHEH2017US030973

PATIENT
  Age: 41 Year
  Sex: Female

DRUGS (1)
  1. GILENYA [Suspect]
     Active Substance: FINGOLIMOD HYDROCHLORIDE
     Indication: RELAPSING-REMITTING MULTIPLE SCLEROSIS
     Dosage: 0.5 MG, QD
     Route: 048
     Dates: start: 20170511

REACTIONS (3)
  - Alopecia [Not Recovered/Not Resolved]
  - Urinary tract infection [Unknown]
  - Uhthoff^s phenomenon [Not Recovered/Not Resolved]

NARRATIVE: CASE EVENT DATE: 20170902
